FAERS Safety Report 9752261 (Version 1)
Quarter: 2013Q4

REPORT INFORMATION
  Report Type: Spontaneous
  Country: SG (occurrence: SG)
  Receive Date: 20131213
  Receipt Date: 20131213
  Transmission Date: 20140711
  Serious: Yes (Hospitalization)
  Sender: FDA-Public Use
  Company Number: SG-ABBVIE-13P-141-1179031-00

PATIENT
  Age: 23 Year
  Sex: Female

DRUGS (2)
  1. KLACID [Suspect]
     Indication: PRODUCT USED FOR UNKNOWN INDICATION
     Route: 048
     Dates: start: 20130921, end: 20130922
  2. NEXIUM [Concomitant]
     Route: 048
     Dates: start: 20130921, end: 20130922

REACTIONS (3)
  - Eye swelling [Unknown]
  - Scleral oedema [Unknown]
  - Rash [Unknown]
